FAERS Safety Report 9031968 (Version 2)
Quarter: 2013Q1

REPORT INFORMATION
  Report Type: Spontaneous
  Country: FR (occurrence: FR)
  Receive Date: 20130125
  Receipt Date: 20130227
  Transmission Date: 20140127
  Serious: Yes (Life-Threatening, Hospitalization, Other)
  Sender: FDA-Public Use
  Company Number: FR-009507513-1301FRA009269

PATIENT
  Age: 59 None
  Sex: Male

DRUGS (10)
  1. EMEND [Suspect]
     Indication: PRODUCT USED FOR UNKNOWN INDICATION
     Dosage: 125 MG, ONCE
     Route: 048
     Dates: start: 20121203, end: 20121203
  2. TAXOTERE [Suspect]
     Indication: ORAL NEOPLASM
     Dosage: 136 MG, CYCLICAL
     Route: 041
     Dates: start: 20121203, end: 20121203
  3. CISPLATIN [Suspect]
     Indication: ORAL NEOPLASM
     Dosage: 138 MG, CYCLICAL
     Route: 041
     Dates: start: 20121203, end: 20121203
  4. FLUOROURACIL [Suspect]
     Indication: ORAL NEOPLASM
     Dosage: 1400 MG, CYCLICAL
     Route: 041
     Dates: start: 20121203, end: 20121208
  5. DEXAMETHASONE [Suspect]
     Indication: PRODUCT USED FOR UNKNOWN INDICATION
     Dosage: 12 MG, ONCE
     Route: 042
     Dates: start: 20121203, end: 20121203
  6. ONDANSETRON [Suspect]
     Indication: PRODUCT USED FOR UNKNOWN INDICATION
     Dosage: 8 MG, ONCE
     Route: 042
     Dates: start: 20121203, end: 20121203
  7. SKENAN [Suspect]
     Indication: ORAL PAIN
     Dosage: 60 MG, BID
     Route: 048
     Dates: start: 20121203, end: 20121215
  8. ACTISKENAN [Suspect]
     Indication: ORAL PAIN
     Dosage: 6 DF, QD
     Route: 048
     Dates: start: 20121203, end: 20121215
  9. ACTISKENAN [Suspect]
     Indication: ORAL PAIN
     Dosage: 6 DF, QD
     Route: 048
     Dates: start: 20121203, end: 20121215
  10. LYRICA [Suspect]
     Indication: ORAL PAIN
     Dosage: UNK
     Route: 048
     Dates: start: 20121203, end: 20121215

REACTIONS (7)
  - Septic shock [Recovered/Resolved]
  - Lung disorder [Recovered/Resolved]
  - Renal failure acute [Recovered/Resolved]
  - Hepatocellular injury [Recovered/Resolved]
  - Diarrhoea [Recovered/Resolved]
  - Vomiting [Recovered/Resolved]
  - Acute respiratory distress syndrome [Recovered/Resolved]
